FAERS Safety Report 19938256 (Version 2)
Quarter: 2021Q4

REPORT INFORMATION
  Report Type: Spontaneous
  Country: ZA (occurrence: ZA)
  Receive Date: 20211011
  Receipt Date: 20211104
  Transmission Date: 20220303
  Serious: No
  Sender: FDA-Public Use
  Company Number: ZA-NOVOPROD-853747

PATIENT
  Age: 64 Year
  Sex: Female

DRUGS (10)
  1. ESTRADIOL HEMIHYDRATE [Suspect]
     Active Substance: ESTRADIOL HEMIHYDRATE
     Indication: Hormone therapy
     Dosage: 2 MG
     Route: 048
  2. MELOXICAM [Concomitant]
     Active Substance: MELOXICAM
     Indication: Pain
     Dosage: 7.5 MG
     Route: 048
  3. HALCION [Concomitant]
     Active Substance: TRIAZOLAM
     Indication: Sleep disorder
     Dosage: 0.25 MG
     Route: 048
  4. GABAPENTIN [Concomitant]
     Active Substance: GABAPENTIN
     Indication: Epilepsy
     Dosage: 300 MG
     Route: 048
  5. DULOXETINE HYDROCHLORIDE [Concomitant]
     Active Substance: DULOXETINE HYDROCHLORIDE
     Indication: Depression
     Dosage: 60 MG
     Route: 048
  6. BUDESONIDE\FORMOTEROL [Concomitant]
     Active Substance: BUDESONIDE\FORMOTEROL
     Indication: Asthma
     Dosage: 160 ???G
     Route: 055
  7. HYDROCHLOROTHIAZIDE\TELMISARTAN [Concomitant]
     Active Substance: HYDROCHLOROTHIAZIDE\TELMISARTAN
     Indication: Hypertension
     Dosage: 80/12.5 MG
     Route: 048
  8. SIMVASTATIN [Concomitant]
     Active Substance: SIMVASTATIN
     Indication: Blood cholesterol abnormal
     Dosage: 10 MG
     Route: 048
  9. FENOTEROL HYDROBROMIDE [Concomitant]
     Active Substance: FENOTEROL HYDROBROMIDE
     Indication: Asthma
     Dosage: UNK
     Route: 055
  10. ACETAMINOPHEN\CODEINE PHOSPHATE\MEPROBAMATE [Concomitant]
     Active Substance: ACETAMINOPHEN\CODEINE PHOSPHATE\MEPROBAMATE
     Indication: Pain
     Dosage: 370 MG
     Route: 048

REACTIONS (2)
  - Nerve compression [Recovered/Resolved]
  - Condition aggravated [Recovered/Resolved]

NARRATIVE: CASE EVENT DATE: 20180101
